FAERS Safety Report 5142239-6 (Version None)
Quarter: 2006Q4

REPORT INFORMATION
  Report Type: 
  Country: None (occurrence: None)
  Receive Date: 20061102
  Receipt Date: 20061025
  Transmission Date: 20070319
  Serious: Yes (Life-Threatening)
  Sender: FDA-Public Use
  Company Number: GB-BRISTOL-MYERS SQUIBB COMPANY-13562012

PATIENT
  Age: 64 Year
  Sex: Male

DRUGS (9)
  1. METFORMIN HCL [Suspect]
     Indication: DIABETES MELLITUS NON-INSULIN-DEPENDENT
     Route: 048
     Dates: start: 20051201
  2. IBUPROFEN [Suspect]
     Indication: NECK PAIN
     Route: 061
  3. ASPIRIN [Concomitant]
     Route: 048
  4. ENALAPRIL MALEATE [Concomitant]
  5. ISOSORBIDE MONONITRATE [Concomitant]
  6. NICORANDIL [Concomitant]
     Route: 048
  7. ROSIGLITAZONE [Concomitant]
     Route: 048
  8. ATORVASTATIN CALCIUM [Concomitant]
  9. DILTIAZEM HCL [Concomitant]

REACTIONS (4)
  - DIZZINESS [None]
  - HYPERKALAEMIA [None]
  - MALAISE [None]
  - RENAL FAILURE ACUTE [None]
